FAERS Safety Report 17733533 (Version 1)
Quarter: 2020Q2

REPORT INFORMATION
  Report Type: Spontaneous
  Country: US (occurrence: US)
  Receive Date: 20200430
  Receipt Date: 20200430
  Transmission Date: 20200714
  Serious: Yes (Hospitalization)
  Sender: FDA-Public Use
  Company Number: None

PATIENT
  Age: 72 Year
  Sex: Female

DRUGS (6)
  1. ESOMEPRA MAG [Concomitant]
  2. DEFERASIROX 360MG [Suspect]
     Active Substance: DEFERASIROX
     Indication: AUTOIMMUNE HAEMOLYTIC ANAEMIA
     Route: 048
     Dates: start: 20200228
  3. MIRTAZAPINE. [Concomitant]
     Active Substance: MIRTAZAPINE
  4. MAG 64 [Concomitant]
  5. FOLIC ACID. [Concomitant]
     Active Substance: FOLIC ACID
  6. PHOSPHORUS [Concomitant]
     Active Substance: PHOSPHORUS

REACTIONS (2)
  - Pancreatitis [None]
  - Therapy interrupted [None]

NARRATIVE: CASE EVENT DATE: 202004
